FAERS Safety Report 24193214 (Version 1)
Quarter: 2024Q3

REPORT INFORMATION
  Report Type: Spontaneous
  Country: TR (occurrence: TR)
  Receive Date: 20240809
  Receipt Date: 20240809
  Transmission Date: 20241017
  Serious: Yes (Other)
  Sender: MACLEODS
  Company Number: TR-MACLEODS PHARMA-MAC2024048601

PATIENT

DRUGS (4)
  1. SOLIFENACIN [Suspect]
     Active Substance: SOLIFENACIN
     Indication: Hypertonic bladder
     Route: 065
  2. SOLIFENACIN [Suspect]
     Active Substance: SOLIFENACIN
     Route: 065
  3. OLANZAPINE [Suspect]
     Active Substance: OLANZAPINE
     Indication: Acute psychosis
     Route: 065
  4. OLANZAPINE [Suspect]
     Active Substance: OLANZAPINE
     Route: 065

REACTIONS (3)
  - Acute psychosis [Not Recovered/Not Resolved]
  - Sedation [Unknown]
  - Extra dose administered [Unknown]
